FAERS Safety Report 6009691-5 (Version None)
Quarter: 2008Q4

REPORT INFORMATION
  Report Type: 
  Country: None (occurrence: None)
  Receive Date: 20081217
  Receipt Date: 20081208
  Transmission Date: 20090506
  Serious: No
  Sender: FDA-Public Use
  Company Number: US-BAYER-200837596NA

PATIENT
  Age: 38 Year
  Sex: Female

DRUGS (2)
  1. YAZ [Suspect]
     Indication: CONTRACEPTION
     Route: 048
     Dates: start: 20080401, end: 20080601
  2. YAZ [Suspect]
     Route: 048
     Dates: start: 20081025

REACTIONS (3)
  - ABNORMAL BEHAVIOUR [None]
  - AFFECT LABILITY [None]
  - NO ADVERSE EVENT [None]
